FAERS Safety Report 7893301-6 (Version None)
Quarter: 2011Q4

REPORT INFORMATION
  Report Type: 
  Country: None (occurrence: None)
  Receive Date: 20111104
  Receipt Date: 20111101
  Transmission Date: 20120403
  Serious: Yes (Other)
  Sender: FDA-Public Use
  Company Number: JP-PFIZER INC-2011267452

PATIENT
  Age: 58 Year
  Sex: Male

DRUGS (2)
  1. VARENICLINE TARTRATE [Suspect]
     Indication: SMOKING CESSATION THERAPY
     Dosage: UNK
     Route: 048
     Dates: start: 20110822, end: 20111025
  2. MIRADOL [Concomitant]
     Route: 048

REACTIONS (6)
  - SOMNOLENCE [None]
  - SYNCOPE [None]
  - ANGER [None]
  - AFFECT LABILITY [None]
  - ROAD TRAFFIC ACCIDENT [None]
  - SUICIDAL IDEATION [None]
